FAERS Safety Report 22090712 (Version 1)
Quarter: 2023Q1

REPORT INFORMATION
  Report Type: Spontaneous
  Country: US (occurrence: US)
  Receive Date: 20230313
  Receipt Date: 20230313
  Transmission Date: 20230418
  Serious: Yes (Hospitalization)
  Sender: FDA-Public Use
  Company Number: US-ANIPHARMA-2023-US-005419

PATIENT
  Age: 6 Month
  Sex: Male
  Weight: 5.9 kg

DRUGS (1)
  1. ERYTHROMYCIN ETHYLSUCCINATE [Suspect]
     Active Substance: ERYTHROMYCIN ETHYLSUCCINATE
     Indication: Skin infection
     Dosage: UNSPECIFIED DOSE 3 TIMES DAILY
     Route: 048
     Dates: start: 20230221, end: 20230303

REACTIONS (13)
  - Skin turgor decreased [Recovered/Resolved]
  - Urine output decreased [Recovered/Resolved]
  - Dehydration [Recovered/Resolved]
  - Blood sodium decreased [Recovering/Resolving]
  - Blood calcium decreased [Unknown]
  - Blood zinc decreased [Not Recovered/Not Resolved]
  - Fatigue [Not Recovered/Not Resolved]
  - Eyelid oedema [Recovered/Resolved]
  - Eyelid ptosis [Recovered/Resolved]
  - Lagophthalmos [Recovered/Resolved]
  - Diarrhoea [Recovered/Resolved]
  - Lid sulcus deepened [Recovered/Resolved]
  - Social avoidant behaviour [Recovered/Resolved]

NARRATIVE: CASE EVENT DATE: 20230224
